FAERS Safety Report 16404402 (Version 1)
Quarter: 2019Q2

REPORT INFORMATION
  Report Type: Report from Study
  Country: US (occurrence: US)
  Receive Date: 20190607
  Receipt Date: 20190607
  Transmission Date: 20190711
  Serious: Yes (Hospitalization)
  Sender: FDA-Public Use
  Company Number: US-JNJFOC-20190605916

PATIENT
  Sex: Female

DRUGS (16)
  1. IMBRUVICA [Suspect]
     Active Substance: IBRUTINIB
     Indication: CHRONIC LYMPHOCYTIC LEUKAEMIA
     Route: 048
     Dates: start: 20161103, end: 20180713
  2. TURMERIC [Concomitant]
     Active Substance: HERBALS\TURMERIC
     Indication: CHRONIC LYMPHOCYTIC LEUKAEMIA
  3. MAGNESIUM [Concomitant]
     Active Substance: MAGNESIUM
  4. TURMERIC [Concomitant]
     Active Substance: HERBALS\TURMERIC
     Indication: CHRONIC LYMPHOCYTIC LEUKAEMIA
  5. FOSAMAX [Concomitant]
     Active Substance: ALENDRONATE SODIUM
  6. ELIQUIS [Concomitant]
     Active Substance: APIXABAN
  7. ZOFRAN [Concomitant]
     Active Substance: ONDANSETRON HYDROCHLORIDE
  8. THYROID [Concomitant]
     Active Substance: LEVOTHYROXINE\LIOTHYRONINE
  9. IMBRUVICA [Suspect]
     Active Substance: IBRUTINIB
     Indication: CHRONIC LYMPHOCYTIC LEUKAEMIA
     Route: 048
     Dates: start: 20180714, end: 20181105
  10. DYAZIDE [Concomitant]
     Active Substance: HYDROCHLOROTHIAZIDE\TRIAMTERENE
  11. VITAMIN D [Concomitant]
     Active Substance: VITAMIN D NOS
  12. HYDRALAZINE [Concomitant]
     Active Substance: HYDRALAZINE HYDROCHLORIDE
  13. CYCLOBENZAPRINE. [Concomitant]
     Active Substance: CYCLOBENZAPRINE
  14. ZANTAC [Concomitant]
     Active Substance: RANITIDINE HYDROCHLORIDE
  15. IMBRUVICA [Suspect]
     Active Substance: IBRUTINIB
     Indication: CHRONIC LYMPHOCYTIC LEUKAEMIA
     Route: 048
     Dates: start: 20181106
  16. METOPROLOL. [Concomitant]
     Active Substance: METOPROLOL

REACTIONS (3)
  - Blood sodium decreased [Unknown]
  - Constipation [Unknown]
  - Asthenia [Unknown]
